FAERS Safety Report 10180208 (Version 1)
Quarter: 2014Q2

REPORT INFORMATION
  Report Type: Spontaneous
  Country: US (occurrence: US)
  Receive Date: 20140519
  Receipt Date: 20140519
  Transmission Date: 20141212
  Serious: No
  Sender: FDA-Public Use
  Company Number: US-AMGEN INC.-USASP2013086124

PATIENT
  Age: 64 Year
  Sex: Female

DRUGS (10)
  1. PROLIA [Suspect]
     Indication: PRODUCT USED FOR UNKNOWN INDICATION
     Dosage: 60 MG, Q6MO
     Route: 065
     Dates: start: 2012
  2. ZOLOFT [Concomitant]
     Dosage: UNK
     Route: 065
  3. ASACOL [Concomitant]
     Dosage: UNK
     Route: 065
  4. RAMIPRIL [Concomitant]
     Indication: BLOOD PRESSURE
     Dosage: UNK
     Route: 065
  5. SYNTHROID [Concomitant]
     Dosage: UNK
     Route: 065
  6. LEVOTHYROXINE [Concomitant]
     Dosage: UNK
     Route: 065
  7. CALCIUM [Concomitant]
     Dosage: UNK
     Route: 065
  8. VITAMIN D                          /00107901/ [Concomitant]
     Dosage: UNK UNK, Q2WK
     Route: 065
  9. OMEPRAZOLE [Concomitant]
     Dosage: UNK
     Route: 065
  10. ATORVASTATIN [Concomitant]
     Dosage: UNK
     Route: 065

REACTIONS (1)
  - Pain [Unknown]
